FAERS Safety Report 4578825-1 (Version None)
Quarter: 2005Q1

REPORT INFORMATION
  Report Type: 
  Country: None (occurrence: None)
  Receive Date: 20050211
  Receipt Date: 20050202
  Transmission Date: 20050727
  Serious: Yes (Hospitalization)
  Sender: FDA-Public Use
  Company Number: US-BRISTOL-MYERS SQUIBB COMPANY-12850871

PATIENT
  Age: 41 Year
  Sex: Female

DRUGS (8)
  1. SERZONE [Suspect]
     Dates: start: 20000110, end: 20020201
  2. XANAX [Concomitant]
  3. PREMARIN [Concomitant]
  4. ESTRADIOL [Concomitant]
  5. CELEBREX [Concomitant]
  6. HYDROCODONE [Concomitant]
  7. ALLOPURINOL [Concomitant]
  8. AMBIEN [Concomitant]

REACTIONS (10)
  - ABDOMINAL TENDERNESS [None]
  - DIABETES MELLITUS [None]
  - DIZZINESS [None]
  - HEADACHE [None]
  - LIVER FUNCTION TEST ABNORMAL [None]
  - NEUROPATHY [None]
  - OSTEOARTHRITIS [None]
  - PALPITATIONS [None]
  - PARAESTHESIA [None]
  - PNEUMONIA [None]
